FAERS Safety Report 7437984-3 (Version None)
Quarter: 2011Q2

REPORT INFORMATION
  Report Type: 
  Country: None (occurrence: None)
  Receive Date: 20110421
  Receipt Date: 20110421
  Transmission Date: 20111010
  Serious: Yes (Life-Threatening, Hospitalization)
  Sender: FDA-Public Use
  Company Number: None

PATIENT
  Age: 65 Year
  Sex: Male
  Weight: 95 kg

DRUGS (1)
  1. METHYLPREDNISOLONE [Suspect]
     Dosage: UD TAB UD PO
     Route: 048
     Dates: start: 20110114, end: 20110116

REACTIONS (4)
  - POLYURIA [None]
  - POLYDIPSIA [None]
  - VISION BLURRED [None]
  - HYPERGLYCAEMIA [None]
